FAERS Safety Report 9441849 (Version 2)
Quarter: 2013Q3

REPORT INFORMATION
  Report Type: Spontaneous
  Country: JP (occurrence: JP)
  Receive Date: 20130801
  Receipt Date: 20130923
  Transmission Date: 20140515
  Serious: Yes (Other)
  Sender: FDA-Public Use
  Company Number: SYM-2013-07438

PATIENT
  Age: 78 Year
  Sex: Female

DRUGS (3)
  1. TIMOPTOL OPHTHALMIC SOLUTION 0.5% [Suspect]
     Indication: INTRAOCULAR PRESSURE INCREASED
     Route: 047
     Dates: start: 2007
  2. TIMOPTOL OPHTHALMIC SOLUTION 0.5% [Suspect]
     Indication: UVEITIS
     Route: 047
     Dates: start: 2007
  3. BETAMETHASONE (BETAMETHASONE)(ORAL SOLUTION)(BETAMETHASONE) [Concomitant]

REACTIONS (4)
  - Eyelid ptosis [None]
  - Myasthenia gravis [None]
  - Myasthenia gravis [None]
  - Eye disorder [None]
